FAERS Safety Report 4822707-4 (Version None)
Quarter: 2005Q4

REPORT INFORMATION
  Report Type: 
  Country: None (occurrence: None)
  Receive Date: 20051104
  Receipt Date: 20051027
  Transmission Date: 20060501
  Serious: Yes (Death, Life-Threatening, Hospitalization)
  Sender: FDA-Public Use
  Company Number: 2005JP001100

PATIENT
  Age: 6 Month
  Sex: Male
  Weight: 8.7 kg

DRUGS (3)
  1. PROGRAF [Suspect]
     Indication: LIVER TRANSPLANT
     Dosage: BID, ORAL
     Route: 048
     Dates: start: 20010310, end: 20010829
  2. METHYLPREDNISOLONE (METHYLPREDNISOLONE) INJECTION [Concomitant]
  3. DENOSINE ^TANABE^ (GANCICLOVIR) INJECTION [Concomitant]

REACTIONS (10)
  - BLOOD BILIRUBIN INCREASED [None]
  - COMPLICATIONS OF TRANSPLANT SURGERY [None]
  - CONDITION AGGRAVATED [None]
  - CYTOMEGALOVIRUS INFECTION [None]
  - DIFFUSE LARGE B-CELL LYMPHOMA [None]
  - EPSTEIN-BARR VIRUS INFECTION [None]
  - HEPATIC FAILURE [None]
  - LIVER TRANSPLANT REJECTION [None]
  - LYMPHOPROLIFERATIVE DISORDER [None]
  - TONSILLAR NEOPLASM [None]
